FAERS Safety Report 6787458-8 (Version None)
Quarter: 2010Q2

REPORT INFORMATION
  Report Type: 
  Country: None (occurrence: None)
  Receive Date: 20100623
  Receipt Date: 20070515
  Transmission Date: 20101027
  Serious: Yes (Other)
  Sender: FDA-Public Use
  Company Number: US-PFIZER INC-2007039462

PATIENT
  Sex: Female
  Weight: 62 kg

DRUGS (1)
  1. MEDROXYPROGESTERONE ACETATE [Suspect]
     Indication: MENSTRUAL DISCOMFORT
     Route: 030
     Dates: start: 20070110, end: 20070101

REACTIONS (3)
  - ABDOMINAL DISTENSION [None]
  - AMENORRHOEA [None]
  - WEIGHT INCREASED [None]
